FAERS Safety Report 19451230 (Version 4)
Quarter: 2021Q3

REPORT INFORMATION
  Report Type: Spontaneous
  Country: FR (occurrence: FR)
  Receive Date: 20210623
  Receipt Date: 20210722
  Transmission Date: 20211014
  Serious: Yes (Life-Threatening)
  Sender: FDA-Public Use
  Company Number: FR-ORGANON-O2106FRA001677

PATIENT
  Age: 71 Year
  Sex: Male
  Weight: 76 kg

DRUGS (8)
  1. MOMETASONE FUROATE. [Suspect]
     Active Substance: MOMETASONE FUROATE
     Dosage: UNK
  2. MOMETASONE FUROATE. [Suspect]
     Active Substance: MOMETASONE FUROATE
     Dosage: 100 MG, QD
     Route: 048
     Dates: start: 2012, end: 20210521
  3. MOMETASONE FUROATE. [Suspect]
     Active Substance: MOMETASONE FUROATE
     Dosage: UNK
  4. DESLORATADINE. [Suspect]
     Active Substance: DESLORATADINE
     Dosage: 1 DF, QD
     Route: 048
     Dates: start: 2012, end: 20210521
  5. ROCGEL [Suspect]
     Active Substance: ALUMINUM OXIDE
     Dosage: 3 DF, QD
     Route: 048
     Dates: start: 20200207, end: 20210521
  6. APROVEL [Suspect]
     Active Substance: IRBESARTAN
     Dosage: 1 DF, QD
     Route: 048
     Dates: start: 2012
  7. MOMETASONE FUROATE. [Suspect]
     Active Substance: MOMETASONE FUROATE
     Dosage: UNK
  8. COMIRNATY [Suspect]
     Active Substance: TOZINAMERAN
     Indication: COVID-19 IMMUNISATION
     Dosage: 2 DF, UNK
     Route: 030
     Dates: start: 20210409, end: 20210506

REACTIONS (1)
  - Cerebral venous thrombosis [Unknown]

NARRATIVE: CASE EVENT DATE: 20210519
